FAERS Safety Report 15731360 (Version 2)
Quarter: 2019Q1

REPORT INFORMATION
  Report Type: Spontaneous
  Country: US (occurrence: US)
  Receive Date: 20181217
  Receipt Date: 20190201
  Transmission Date: 20190417
  Serious: Yes (Other)
  Sender: FDA-Public Use
  Company Number: US-SHIRE-US201847896

PATIENT
  Age: 50 Year
  Sex: Female

DRUGS (1)
  1. TAKHZYRO [Suspect]
     Active Substance: LANADELUMAB-FLYO
     Indication: PROPHYLAXIS
     Dosage: 2 MILLILITER, 1X/2WKS
     Route: 058
     Dates: start: 20181207

REACTIONS (4)
  - Syncope [Recovered/Resolved]
  - Hyperhidrosis [Unknown]
  - Headache [Unknown]
  - Unresponsive to stimuli [Unknown]

NARRATIVE: CASE EVENT DATE: 20181207
